FAERS Safety Report 16791415 (Version 1)
Quarter: 2019Q3

REPORT INFORMATION
  Report Type: Spontaneous
  Country: US (occurrence: US)
  Receive Date: 20190910
  Receipt Date: 20190910
  Transmission Date: 20191005
  Serious: No
  Sender: FDA-Public Use
  Company Number: US-NEUROCRINE BIOSCIENCES INC.-2019NBI02497

PATIENT
  Age: 16 Year
  Sex: Male

DRUGS (2)
  1. INGREZZA [Suspect]
     Active Substance: VALBENAZINE
     Indication: AFFECTIVE DISORDER
  2. FANAPT [Concomitant]
     Active Substance: ILOPERIDONE
     Indication: PSYCHOTIC DISORDER

REACTIONS (3)
  - Torticollis [Unknown]
  - Off label use [Unknown]
  - Blepharospasm [Unknown]
